FAERS Safety Report 14591749 (Version 1)
Quarter: 2018Q1

REPORT INFORMATION
  Report Type: Spontaneous
  Country: US (occurrence: US)
  Receive Date: 20180301
  Receipt Date: 20180301
  Transmission Date: 20180509
  Serious: Yes (Hospitalization)
  Sender: FDA-Public Use
  Company Number: None

PATIENT
  Age: 66 Year
  Sex: Female

DRUGS (18)
  1. MIRTAZAPINE. [Concomitant]
     Active Substance: MIRTAZAPINE
  2. VITAMIN D [Concomitant]
     Active Substance: CHOLECALCIFEROL
  3. FAMOTIDINE. [Concomitant]
     Active Substance: FAMOTIDINE
  4. DAPSONE. [Concomitant]
     Active Substance: DAPSONE
  5. AMLODIPINE [Concomitant]
     Active Substance: AMLODIPINE BESYLATE
  6. VITAMIN D3 [Concomitant]
     Active Substance: CHOLECALCIFEROL
  7. DRONABINOL. [Concomitant]
     Active Substance: DRONABINOL
  8. BUDESONIDE. [Concomitant]
     Active Substance: BUDESONIDE
  9. BECLOMETHASO [Concomitant]
  10. VORICONAZOLE. [Concomitant]
     Active Substance: VORICONAZOLE
  11. TRIAMCINOLONE [Concomitant]
     Active Substance: TRIAMCINOLONE
  12. TACROLIMUS. [Suspect]
     Active Substance: TACROLIMUS
     Indication: PRODUCT USED FOR UNKNOWN INDICATION
     Dosage: 0.5MG T 1C PO DAILY ORAL
     Route: 048
     Dates: start: 20171117
  13. CARVEDILOL. [Concomitant]
     Active Substance: CARVEDILOL
  14. ACYCLOVIR. [Concomitant]
     Active Substance: ACYCLOVIR
  15. A-HYDROCORT [Concomitant]
     Active Substance: HYDROCORTISONE SODIUM SUCCINATE
  16. ATOVAQUONE. [Concomitant]
     Active Substance: ATOVAQUONE
  17. PANTOPRAZOLE [Concomitant]
     Active Substance: PANTOPRAZOLE
  18. CALCIUM [Concomitant]
     Active Substance: CALCIUM

REACTIONS (1)
  - Influenza [None]

NARRATIVE: CASE EVENT DATE: 201802
